FAERS Safety Report 7344746-4 (Version None)
Quarter: 2011Q1

REPORT INFORMATION
  Report Type: 
  Country: None (occurrence: None)
  Receive Date: 20110310
  Receipt Date: 20110304
  Transmission Date: 20110831
  Serious: Yes (Other)
  Sender: FDA-Public Use
  Company Number: GB-EISAI INC-E2020-08525-SPO-GB

PATIENT
  Sex: Female
  Weight: 70.1 kg

DRUGS (14)
  1. GAVISCON [Concomitant]
     Route: 048
     Dates: start: 20091124
  2. SIMVASTATIN [Concomitant]
     Dosage: UNKNOWN
     Route: 048
     Dates: start: 20101103
  3. CANDESARTAN [Concomitant]
     Route: 048
     Dates: start: 20100804
  4. SALBUTAMOL [Concomitant]
     Dosage: FREE INHALER 100MCG PER INHALATION 2 DOSES VIA INHALATION AS NEEDED
     Dates: start: 20100505
  5. AMITRIPTYLINE HYDROCHLORIDE [Concomitant]
     Route: 048
     Dates: start: 20100712
  6. CINNARIZINE [Concomitant]
     Dosage: UNKNOWN
     Route: 048
     Dates: start: 20101123
  7. LANSOPRAZOLE [Concomitant]
     Route: 048
     Dates: start: 20100712
  8. ACETYLSALICYLIC ACID [Concomitant]
     Route: 048
     Dates: start: 20110110
  9. TRAMADOL [Concomitant]
     Dosage: 50 MG ONE OR TWO AS DIRECTED
     Route: 048
     Dates: start: 20100804
  10. BISOPROLOL FUMARATE [Concomitant]
     Route: 048
     Dates: start: 20100804
  11. SYMBICORT [Concomitant]
     Dosage: 200 MICROGRAMS + 6 MICROGRAMS PER ACTUATION ONE PUFF BID  INHALATION
     Dates: start: 20091124
  12. FELODIPINE [Concomitant]
     Route: 048
     Dates: start: 20100804
  13. ARICEPT [Suspect]
     Route: 048
     Dates: start: 20110119, end: 20110126
  14. ESOMEPRAZOLE [Concomitant]
     Route: 048
     Dates: start: 20110110

REACTIONS (2)
  - EYE PAIN [None]
  - ASTHENOPIA [None]
